FAERS Safety Report 17503108 (Version 1)
Quarter: 2020Q1

REPORT INFORMATION
  Report Type: Spontaneous
  Country: US (occurrence: US)
  Receive Date: 20200305
  Receipt Date: 20200305
  Transmission Date: 20200409
  Serious: Yes (Other)
  Sender: FDA-Public Use
  Company Number: None

PATIENT
  Age: 46 Year
  Sex: Male

DRUGS (7)
  1. BUPRENORPHINE NALOXONE 8-2MG FILMS [Concomitant]
     Dates: start: 20191126, end: 20200305
  2. BUPRENORPHINE-NALOXONE 8-2 MG TABLETS [Concomitant]
  3. BUPRENORPHINE NALOXONE 8-2MG TABLETS [Concomitant]
     Active Substance: BUPRENORPHINE HYDROCHLORIDE\NALOXONE HYDROCHLORIDE
     Dates: start: 20180323, end: 20130424
  4. BUPRENORPHINE NALOXONE 8-2MG TABLETS [Suspect]
     Active Substance: BUPRENORPHINE HYDROCHLORIDE\NALOXONE HYDROCHLORIDE
     Dates: start: 20180122, end: 20180318
  5. (BRAND) SUBOXONE 8-2MG FILMS [Concomitant]
     Dates: start: 20180425, end: 20191125
  6. BUNAVAIL [Suspect]
     Active Substance: BUPRENORPHINE HYDROCHLORIDE\NALOXONE HYDROCHLORIDE
     Indication: DRUG DEPENDENCE
     Route: 048
     Dates: start: 20180425, end: 20200305
  7. BUNAVAIL 4.2 MG-0.7 MG FILM [Concomitant]
     Dates: start: 20180319, end: 20180322

REACTIONS (4)
  - Drug withdrawal syndrome [None]
  - Product substitution issue [None]
  - Nausea [None]
  - Drug dependence [None]

NARRATIVE: CASE EVENT DATE: 20200305
